FAERS Safety Report 4767924-7 (Version None)
Quarter: 2005Q3

REPORT INFORMATION
  Report Type: 
  Country: None (occurrence: None)
  Receive Date: 20050913
  Receipt Date: 20050829
  Transmission Date: 20060218
  Serious: Yes (Other)
  Sender: FDA-Public Use
  Company Number: HQWYE625923JUN05

PATIENT
  Age: 34 Year
  Sex: Female
  Weight: 58.1 kg

DRUGS (8)
  1. PROGRAF [Suspect]
     Indication: PROPHYLAXIS AGAINST TRANSPLANT REJECTION
     Dosage: 3 MG 2X PER 1 DAY, ORAL
     Route: 048
  2. CELLCEPT [Suspect]
     Dosage: ORAL
     Route: 048
     Dates: end: 20050501
  3. CORTICOCOSTEROID NOS (CORTICOSTEROID NOS) [Suspect]
     Dosage: ORAL
     Route: 048
  4. ZENAPAX [Suspect]
  5. PREDNISONE [Concomitant]
  6. TOPROL-XL [Concomitant]
  7. SINGULAIR [Concomitant]
  8. PEPCID [Concomitant]

REACTIONS (3)
  - BLASTOMYCOSIS [None]
  - LUNG CONSOLIDATION [None]
  - METASTASES TO LYMPH NODES [None]
